FAERS Safety Report 7444555-1 (Version None)
Quarter: 2011Q2

REPORT INFORMATION
  Report Type: 
  Country: None (occurrence: None)
  Receive Date: 20110429
  Receipt Date: 20110425
  Transmission Date: 20111010
  Serious: Yes (Other)
  Sender: FDA-Public Use
  Company Number: US-AMGEN-USASP2011021628

PATIENT
  Sex: Female

DRUGS (3)
  1. CYCLOSPORINE [Concomitant]
  2. NPLATE [Suspect]
     Indication: PRODUCT USED FOR UNKNOWN INDICATION
     Dates: start: 20100101
  3. ANTIBIOTICS [Concomitant]

REACTIONS (6)
  - MALAISE [None]
  - ABDOMINAL PAIN [None]
  - FLATULENCE [None]
  - HAEMATOCRIT DECREASED [None]
  - FEELING ABNORMAL [None]
  - BACK PAIN [None]
